FAERS Safety Report 22331620 (Version 1)
Quarter: 2023Q2

REPORT INFORMATION
  Report Type: Spontaneous
  Country: US (occurrence: None)
  Receive Date: 20230516
  Receipt Date: 20230516
  Transmission Date: 20230721
  Serious: No
  Sender: FDA-Public Use
  Company Number: None

PATIENT
  Age: 85 Year
  Sex: Male
  Weight: 72.9 kg

DRUGS (1)
  1. DOXYCYCLINE HYCLATE [Suspect]
     Active Substance: DOXYCYCLINE HYCLATE
     Indication: Lung disorder
     Dosage: FREQUENCY : TWICE A DAY;?
     Route: 048
     Dates: start: 20230508, end: 20230515

REACTIONS (6)
  - Rash [None]
  - Rash erythematous [None]
  - Pain [None]
  - Skin burning sensation [None]
  - Photosensitivity reaction [None]
  - Temperature intolerance [None]

NARRATIVE: CASE EVENT DATE: 20230508
